FAERS Safety Report 9791428 (Version 2)
Quarter: 2014Q1

REPORT INFORMATION
  Report Type: Report from Study
  Country: JP (occurrence: JP)
  Receive Date: 20140101
  Receipt Date: 20140306
  Transmission Date: 20141002
  Serious: Yes (Other)
  Sender: FDA-Public Use
  Company Number: PHHY2013JP153363

PATIENT
  Age: 71 Year
  Sex: Male

DRUGS (5)
  1. AMN107 [Suspect]
     Indication: CHRONIC MYELOID LEUKAEMIA
     Dosage: 400 MG, BID
     Route: 048
     Dates: start: 20090428, end: 20100510
  2. AMN107 [Suspect]
     Dosage: 400 MG, QD
     Route: 048
     Dates: start: 20100511, end: 20100714
  3. AMN107 [Suspect]
     Dosage: 400 MG, BID
     Route: 048
     Dates: start: 20100715, end: 20100906
  4. AMN107 [Suspect]
     Dosage: 400 MG, QD
     Route: 048
     Dates: start: 20100907, end: 20120116
  5. PROCYLIN [Concomitant]
     Indication: HYPERTENSION
     Dosage: 60 MG
     Route: 048
     Dates: start: 20080612

REACTIONS (1)
  - Electrocardiogram QT prolonged [Recovered/Resolved]
